FAERS Safety Report 19850346 (Version 3)
Quarter: 2021Q3

REPORT INFORMATION
  Report Type: Report from Study
  Country: CA (occurrence: CA)
  Receive Date: 20210917
  Receipt Date: 20210928
  Transmission Date: 20211014
  Serious: Yes (Life-Threatening, Hospitalization)
  Sender: FDA-Public Use
  Company Number: CA-EISAI MEDICAL RESEARCH-EC-2021-097712

PATIENT
  Age: 60 Year
  Sex: Male
  Weight: 79.5 kg

DRUGS (25)
  1. METFORMIN [Concomitant]
     Active Substance: METFORMIN HYDROCHLORIDE
     Dates: start: 201801
  2. PROCHLORAZINE [Concomitant]
     Dates: start: 202005
  3. ASPIRIN. [Concomitant]
     Active Substance: ASPIRIN
     Dates: start: 202005
  4. LENVATINIB [Suspect]
     Active Substance: LENVATINIB
     Indication: RENAL CELL CARCINOMA
     Route: 048
     Dates: start: 20210526, end: 20210805
  5. PULMICORT TURBUHALER [Concomitant]
     Active Substance: BUDESONIDE
     Dates: start: 201501
  6. AMITRIPTYLINE HYDROCHLORIDE. [Concomitant]
     Active Substance: AMITRIPTYLINE HYDROCHLORIDE
     Dates: start: 202005
  7. ROSUVASTATIN. [Concomitant]
     Active Substance: ROSUVASTATIN
     Dates: start: 202005
  8. VOLTARENE [Concomitant]
     Dates: start: 199601
  9. JARDIANCE [Concomitant]
     Active Substance: EMPAGLIFLOZIN
     Dates: start: 201801
  10. NITROSPRAY [Concomitant]
     Active Substance: NITROGLYCERIN
     Dates: start: 202005
  11. LOSARTAN. [Concomitant]
     Active Substance: LOSARTAN
     Dates: start: 202005
  12. BELZUTIFAN. [Suspect]
     Active Substance: BELZUTIFAN
     Indication: RENAL CELL CARCINOMA
     Route: 048
     Dates: start: 20210526, end: 20210805
  13. OZEMPIC [Concomitant]
     Active Substance: SEMAGLUTIDE
     Dates: start: 201801
  14. MELATONIN [Concomitant]
     Active Substance: MELATONIN
     Dates: start: 202005
  15. CIPROFLOXACIN. [Concomitant]
     Active Substance: CIPROFLOXACIN
     Dates: start: 20210723
  16. TRESIBA [Concomitant]
     Active Substance: INSULIN DEGLUDEC
     Dates: start: 201801
  17. VITAMIN D [Concomitant]
     Active Substance: VITAMIN D NOS
     Dates: start: 201901
  18. EZETIMIBE. [Concomitant]
     Active Substance: EZETIMIBE
     Dates: start: 202005
  19. LEVOTHYROXINE SODIUM. [Concomitant]
     Active Substance: LEVOTHYROXINE SODIUM
     Dates: start: 20210708
  20. SIMETHICONE (DIMETHICONE) [Concomitant]
     Active Substance: DIMETHICONE
     Dates: start: 20210609
  21. CLONAZEPAM. [Concomitant]
     Active Substance: CLONAZEPAM
     Dates: start: 200601
  22. PANTOPRAZOLE [Concomitant]
     Active Substance: PANTOPRAZOLE
     Dates: start: 202005
  23. CARVEDILOL. [Concomitant]
     Active Substance: CARVEDILOL
     Dates: start: 202005
  24. INNOHEP [Concomitant]
     Active Substance: TINZAPARIN SODIUM
     Dates: start: 202009
  25. RUPALL [Concomitant]
     Active Substance: RUPATADINE FUMARATE
     Dates: start: 202101

REACTIONS (1)
  - Cardiogenic shock [Recovered/Resolved]

NARRATIVE: CASE EVENT DATE: 20210803
